FAERS Safety Report 10461953 (Version 15)
Quarter: 2015Q3

REPORT INFORMATION
  Report Type: Report from Study
  Country: IL (occurrence: IL)
  Receive Date: 20140918
  Receipt Date: 20150701
  Transmission Date: 20151125
  Serious: Yes (Hospitalization)
  Sender: FDA-Public Use
  Company Number: IL-MERCK-1408ISR003876

PATIENT
  Age: 86 Year
  Sex: Male
  Weight: 71 kg

DRUGS (19)
  1. PEMBROLIZUMAB. [Suspect]
     Active Substance: PEMBROLIZUMAB
     Indication: MALIGNANT MELANOMA
     Dosage: UNK, Q3W
     Route: 042
     Dates: start: 20130526, end: 20140430
  2. PEMBROLIZUMAB. [Suspect]
     Active Substance: PEMBROLIZUMAB
     Dosage: UNK, Q3W
     Route: 042
     Dates: start: 20140721, end: 20140721
  3. GLUBEN [Concomitant]
     Indication: TYPE 2 DIABETES MELLITUS
     Dosage: TOTAL DAILY DOSE: 5 MG, PRN
     Route: 048
     Dates: start: 200803
  4. XATRAL [Concomitant]
     Active Substance: ALFUZOSIN
     Indication: BENIGN PROSTATIC HYPERPLASIA
     Dosage: 10 MG, QD
     Route: 048
     Dates: start: 20130509
  5. REPAGLINIDE. [Concomitant]
     Active Substance: REPAGLINIDE
     Indication: HYPERGLYCAEMIA
     Dosage: DAILY DOSE 1 MG
     Route: 048
     Dates: start: 20140108, end: 20140731
  6. PREDNISOLONE. [Concomitant]
     Active Substance: PREDNISOLONE
     Indication: DIARRHOEA
     Dosage: TOTAL DAILY DOSE: 5 MG, FREQUENCY: UNKNOWN
     Route: 048
     Dates: start: 20140320, end: 20140731
  7. CARTIA (ASPIRIN) [Concomitant]
     Active Substance: ASPIRIN
     Indication: MYOCARDIAL ISCHAEMIA
     Dosage: 100 MG, QD
     Route: 048
     Dates: start: 199709
  8. PLAVIX [Concomitant]
     Active Substance: CLOPIDOGREL BISULFATE
     Indication: MYOCARDIAL INFARCTION
     Dosage: 75 MG, QD
     Route: 048
     Dates: start: 20100504
  9. FUSID (FUROSEMIDE) [Concomitant]
     Active Substance: FUROSEMIDE
     Indication: MYOCARDIAL ISCHAEMIA
     Dosage: 80 MG, QD
     Route: 048
     Dates: start: 20110810
  10. U LACTIN [Concomitant]
     Indication: PRURITUS
     Dosage: 1 G, QD
     Route: 061
     Dates: start: 20140129
  11. PEMBROLIZUMAB. [Suspect]
     Active Substance: PEMBROLIZUMAB
     Dosage: UNK, Q3W
     Route: 042
     Dates: start: 20140521, end: 20140521
  12. DIMITONE [Concomitant]
     Indication: MYOCARDIAL ISCHAEMIA
     Dosage: DAILY DOSE 6.25 MG
     Route: 048
     Dates: start: 199709
  13. PEMBROLIZUMAB. [Suspect]
     Active Substance: PEMBROLIZUMAB
     Dosage: UNK, Q3W
     Route: 042
     Dates: start: 20140610, end: 20140701
  14. CLONEX (CLONAZEPAM) [Concomitant]
     Indication: SLEEP DISORDER
     Dosage: 0.5 MG, QD
     Route: 048
     Dates: start: 20130509
  15. PEMBROLIZUMAB. [Suspect]
     Active Substance: PEMBROLIZUMAB
     Dosage: UNK, Q3W
     Route: 042
     Dates: start: 20140910, end: 20140910
  16. LOSARDEX [Concomitant]
     Indication: HYPERTENSION
     Dosage: 50 MG, QD
     Route: 048
     Dates: start: 201201
  17. PEMBROLIZUMAB. [Suspect]
     Active Substance: PEMBROLIZUMAB
     Dosage: UNK, Q3W
     Route: 042
     Dates: start: 20140820, end: 20140820
  18. STOPIT [Concomitant]
     Indication: DIARRHOEA
     Dosage: TOTAL DAILY DOSE: 6 MG; PRN, FORMULATION PILL
     Route: 048
     Dates: start: 20130823
  19. LOSEC (OMEPRAZOLE) [Concomitant]
     Indication: PROPHYLAXIS
     Dosage: 20MG, QD
     Route: 048
     Dates: start: 20131022

REACTIONS (3)
  - Pneumonia [Recovered/Resolved]
  - Diarrhoea [Recovered/Resolved]
  - Pneumonia [Recovered/Resolved]

NARRATIVE: CASE EVENT DATE: 20140521
